FAERS Safety Report 10659418 (Version 3)
Quarter: 2015Q3

REPORT INFORMATION
  Report Type: Spontaneous
  Country: US (occurrence: US)
  Receive Date: 20141217
  Receipt Date: 20150819
  Transmission Date: 20151125
  Serious: No
  Sender: FDA-Public Use
  Company Number: US-GILEAD-2014-0127697

PATIENT
  Age: 61 Year
  Sex: Male

DRUGS (2)
  1. LETAIRIS [Suspect]
     Active Substance: AMBRISENTAN
     Indication: PULMONARY ARTERIAL HYPERTENSION
     Dosage: 10 MG, QD
     Route: 065
  2. OXYGEN. [Concomitant]
     Active Substance: OXYGEN

REACTIONS (8)
  - Chest pain [Unknown]
  - Back pain [Unknown]
  - Pain in extremity [Unknown]
  - Dyspnoea [Unknown]
  - Asthenia [Unknown]
  - Fall [Unknown]
  - Fatigue [Unknown]
  - Syncope [Unknown]

NARRATIVE: CASE EVENT DATE: 2014
